FAERS Safety Report 9129450 (Version 3)
Quarter: 2013Q2

REPORT INFORMATION
  Report Type: Spontaneous
  Country: US (occurrence: US)
  Receive Date: 20130228
  Receipt Date: 20130523
  Transmission Date: 20140414
  Serious: Yes (Hospitalization)
  Sender: FDA-Public Use
  Company Number: US-GLAXOSMITHKLINE-A1013273A

PATIENT
  Age: 68 Year
  Sex: Female

DRUGS (16)
  1. ADVAIR [Suspect]
     Indication: DYSPNOEA
     Dosage: 1PUFF TWICE PER DAY
     Route: 055
     Dates: start: 200909
  2. VENTOLIN [Suspect]
     Indication: DYSPNOEA
     Dosage: 2PUFF AS REQUIRED
     Route: 055
     Dates: start: 1998
  3. INFLUENZA VACCINE [Concomitant]
  4. ANTI PNEUMONIA INJECTION [Concomitant]
  5. SPIRIVA [Concomitant]
  6. DALIRESP [Concomitant]
  7. DILTIAZEM [Concomitant]
  8. PREDNISONE [Concomitant]
  9. FUROSEMIDE [Concomitant]
  10. MUCINEX [Concomitant]
  11. ALBUTEROL SULFATE [Concomitant]
  12. KLOR CON [Concomitant]
  13. BI-PAP [Concomitant]
  14. OXYGEN [Concomitant]
  15. AYR SALINE NASAL DROPS [Concomitant]
  16. SALINE NASAL SPRAY [Concomitant]

REACTIONS (1)
  - Dyspnoea [Recovering/Resolving]
